FAERS Safety Report 19367564 (Version 3)
Quarter: 2021Q3

REPORT INFORMATION
  Report Type: Report from Study
  Country: None (occurrence: CA)
  Receive Date: 20210603
  Receipt Date: 20210722
  Transmission Date: 20211014
  Serious: Yes (Hospitalization)
  Sender: FDA-Public Use
  Company Number: CA-ABBVIE-21K-028-3929331-00

PATIENT
  Age: 81 Year
  Sex: Female
  Weight: 65 kg

DRUGS (4)
  1. COVID?19 VACCINE [Concomitant]
     Indication: COVID-19 IMMUNISATION
     Dates: start: 2021, end: 2021
  2. RINVOQ [Suspect]
     Active Substance: UPADACITINIB
     Indication: RHEUMATOID ARTHRITIS
     Route: 048
     Dates: start: 20200515
  3. DOCETAXEL. [Concomitant]
     Active Substance: DOCETAXEL
     Indication: LUNG ADENOCARCINOMA
     Dosage: CHEMOTHERAPY
     Route: 042
     Dates: start: 20210512, end: 20210512
  4. COVID?19 VACCINE [Concomitant]
     Dates: start: 202105, end: 202105

REACTIONS (13)
  - Pain [Unknown]
  - Cardiomegaly [Unknown]
  - Infection [Unknown]
  - Febrile neutropenia [Recovered/Resolved]
  - Pleural effusion [Unknown]
  - Fatigue [Unknown]
  - Pyrexia [Unknown]
  - Seizure [Unknown]
  - Alopecia [Unknown]
  - Arteriosclerosis [Unknown]
  - Inflammation [Unknown]
  - Colitis [Unknown]
  - Pyrexia [Recovered/Resolved]

NARRATIVE: CASE EVENT DATE: 2021
